FAERS Safety Report 23311389 (Version 4)
Quarter: 2024Q1

REPORT INFORMATION
  Report Type: Spontaneous
  Country: US (occurrence: US)
  Receive Date: 20231219
  Receipt Date: 20240126
  Transmission Date: 20240409
  Serious: No
  Sender: FDA-Public Use
  Company Number: US-ABBVIE-5544528

PATIENT
  Sex: Female

DRUGS (1)
  1. ARMOUR THYROID [Suspect]
     Active Substance: THYROID, PORCINE
     Indication: Product used for unknown indication
     Dosage: 15 MG
     Route: 048

REACTIONS (6)
  - Food allergy [Unknown]
  - Drug hypersensitivity [Unknown]
  - Arthritis [Unknown]
  - Adverse drug reaction [Unknown]
  - Rheumatoid arthritis [Unknown]
  - Autoimmune disorder [Unknown]
